FAERS Safety Report 25055273 (Version 2)
Quarter: 2025Q2

REPORT INFORMATION
  Report Type: Spontaneous
  Country: US (occurrence: US)
  Receive Date: 20250308
  Receipt Date: 20250410
  Transmission Date: 20250717
  Serious: No
  Sender: GLAXOSMITHKLINE
  Company Number: US-GSK-US2025023620

PATIENT
  Sex: Female

DRUGS (1)
  1. NUCALA [Suspect]
     Active Substance: MEPOLIZUMAB
     Indication: Asthma

REACTIONS (5)
  - Malaise [Unknown]
  - Back pain [Unknown]
  - Abdominal discomfort [Unknown]
  - Illness [Unknown]
  - Product dose omission issue [Unknown]
